FAERS Safety Report 6994257-0 (Version None)
Quarter: 2010Q3

REPORT INFORMATION
  Report Type: 
  Country: None (occurrence: None)
  Receive Date: 20100917
  Receipt Date: 20070322
  Transmission Date: 20110219
  Serious: Yes (Disabling)
  Sender: FDA-Public Use
  Company Number: US-ASTRAZENECA-2006UW26344

PATIENT
  Age: 54 Year
  Sex: Female
  Weight: 107 kg

DRUGS (4)
  1. SEROQUEL [Suspect]
     Indication: SLEEP DISORDER
     Dosage: 100 - 300 MG, AT NIGHT
     Route: 048
     Dates: start: 20041020, end: 20070927
  2. SEROQUEL [Suspect]
     Indication: HALLUCINATION
     Dosage: 100 - 300 MG, AT NIGHT
     Route: 048
     Dates: start: 20041020, end: 20070927
  3. ZOLOFT [Concomitant]
     Dosage: 100 - 200 MG, IN THE MORNING
     Dates: start: 20051223
  4. TRAZODONE HCL [Concomitant]
     Dates: start: 20060101

REACTIONS (2)
  - ILL-DEFINED DISORDER [None]
  - WEIGHT INCREASED [None]
